FAERS Safety Report 8325411-3 (Version None)
Quarter: 2012Q2

REPORT INFORMATION
  Report Type: 
  Country: None (occurrence: None)
  Receive Date: 20120501
  Receipt Date: 20120426
  Transmission Date: 20120825
  Serious: Yes (Hospitalization)
  Sender: FDA-Public Use
  Company Number: US-PURDUE-USA-2012-0086070

PATIENT
  Age: 63 Year
  Sex: Male

DRUGS (1)
  1. BUTRANS [Suspect]
     Indication: BACK PAIN
     Route: 062

REACTIONS (1)
  - PNEUMONIA [None]
